FAERS Safety Report 7936758-4 (Version None)
Quarter: 2011Q4

REPORT INFORMATION
  Report Type: 
  Country: None (occurrence: None)
  Receive Date: 20111110
  Receipt Date: 20111031
  Transmission Date: 20120403
  Serious: Yes (Other)
  Sender: FDA-Public Use
  Company Number: 2011028632

PATIENT
  Age: 52 Year
  Sex: Female
  Weight: 80.2867 kg

DRUGS (10)
  1. SIMVASTATIN [Concomitant]
  2. HIZENTRA [Suspect]
  3. HIZENTRA [Suspect]
     Indication: IMMUNODEFICIENCY COMMON VARIABLE
     Dosage: 12 G 1X/WEEK, 60 ML IN UP TO 4 SITES FOR 1--2 HOURS SUBCUTANEOUS (4 GM 20 ML VIAL  SUBCUTANEOUS; 4 G
     Route: 058
     Dates: start: 20101022
  4. HIZENTRA [Suspect]
     Indication: IMMUNODEFICIENCY COMMON VARIABLE
     Dosage: 12 G 1X/WEEK, 60 ML IN UP TO 4 SITES FOR 1--2 HOURS SUBCUTANEOUS (4 GM 20 ML VIAL  SUBCUTANEOUS; 4 G
     Route: 058
     Dates: start: 20101218
  5. HIZENTRA [Suspect]
  6. VITAMIN D [Concomitant]
  7. XOPENEX [Concomitant]
  8. XOLAIR [Concomitant]
  9. ZYFLO [Concomitant]
  10. SYMBICORT [Concomitant]

REACTIONS (3)
  - INFUSION SITE PRURITUS [None]
  - URINARY TRACT INFECTION [None]
  - MUSCULOSKELETAL STIFFNESS [None]
